FAERS Safety Report 5545445-1 (Version None)
Quarter: 2007Q4

REPORT INFORMATION
  Report Type: 
  Country: None (occurrence: None)
  Receive Date: 20071206
  Receipt Date: 20071206
  Transmission Date: 20080405
  Serious: No
  Sender: FDA-Public Use
  Company Number: None

PATIENT
  Age: 48 Year
  Sex: Female

DRUGS (2)
  1. AMOXICILLIN [Suspect]
     Dosage: CAPSULE
  2. DEXAMETHASONE TAB [Suspect]

REACTIONS (2)
  - PRURITUS [None]
  - WRONG DRUG ADMINISTERED [None]
